FAERS Safety Report 4977464-8 (Version None)
Quarter: 2006Q2

REPORT INFORMATION
  Report Type: 
  Country: None (occurrence: None)
  Receive Date: 20060413
  Receipt Date: 20060331
  Transmission Date: 20061013
  Serious: Yes (Hospitalization, Disabling, Other)
  Sender: FDA-Public Use
  Company Number: 2006034075

PATIENT
  Age: 62 Year
  Sex: Female

DRUGS (1)
  1. FELDENE [Suspect]
     Indication: ILL-DEFINED DISORDER
     Dosage: (20 MG, UNKNOWN), ORAL
     Route: 048

REACTIONS (10)
  - BLINDNESS [None]
  - BURN OF INTERNAL ORGANS [None]
  - DEAFNESS [None]
  - DIARRHOEA [None]
  - GASTROINTESTINAL DISORDER [None]
  - GENITAL INJURY [None]
  - INJURY [None]
  - OESOPHAGEAL DISORDER [None]
  - TOXIC EPIDERMAL NECROLYSIS [None]
  - TRACHEAL ULCER [None]
